FAERS Safety Report 26117077 (Version 1)
Quarter: 2025Q4

REPORT INFORMATION
  Report Type: Spontaneous
  Country: US (occurrence: None)
  Receive Date: 20251202
  Receipt Date: 20251202
  Transmission Date: 20260117
  Serious: Yes (Life-Threatening, Other)
  Sender: FDA-CTU
  Company Number: None

PATIENT
  Age: 46 Year
  Sex: Male
  Weight: 90.9 kg

DRUGS (17)
  1. NALTREXONE HYDROCHLORIDE [Suspect]
     Active Substance: NALTREXONE HYDROCHLORIDE
     Indication: Neuralgia
     Dosage: 60 CAPSULE(S) TWICE A DAY ORAL
     Route: 048
     Dates: start: 20251121, end: 20251130
  2. FLEXERIL [Concomitant]
     Active Substance: CYCLOBENZAPRINE HYDROCHLORIDE
  3. MARINOL [Concomitant]
     Active Substance: DRONABINOL
  4. VYEPTI [Concomitant]
     Active Substance: EPTINEZUMAB-JJMR
  5. TESTOSTERONE [Concomitant]
     Active Substance: TESTOSTERONE
  6. UBRELVY [Concomitant]
     Active Substance: UBROGEPANT
  7. FIORICET [Concomitant]
     Active Substance: ACETAMINOPHEN\BUTALBITAL\CAFFEINE
  8. ALBUTEROL [Concomitant]
     Active Substance: ALBUTEROL
  9. FLOVENT HFA [Concomitant]
     Active Substance: FLUTICASONE PROPIONATE
  10. HYOSCYAMINE [Concomitant]
     Active Substance: HYOSCYAMINE
  11. ERGOCALCIFEROL [Concomitant]
     Active Substance: ERGOCALCIFEROL
  12. Meclizine chew [Concomitant]
  13. MODAFINIL [Concomitant]
     Active Substance: MODAFINIL
  14. VITAMINS [Concomitant]
     Active Substance: VITAMINS
  15. MOUNJARO [Concomitant]
     Active Substance: TIRZEPATIDE
  16. NAPROXEN [Concomitant]
     Active Substance: NAPROXEN
  17. HYOSCYAMINE [Concomitant]
     Active Substance: HYOSCYAMINE

REACTIONS (10)
  - Migraine [None]
  - Abnormal dreams [None]
  - Hallucinations, mixed [None]
  - Mental status changes [None]
  - Somnambulism [None]
  - Gastrointestinal disorder [None]
  - Abdominal pain upper [None]
  - Diarrhoea [None]
  - Muscle spasms [None]
  - Abnormal behaviour [None]

NARRATIVE: CASE EVENT DATE: 20251130
